FAERS Safety Report 10152150 (Version 1)
Quarter: 2014Q2

REPORT INFORMATION
  Report Type: Spontaneous
  Country: TR (occurrence: TR)
  Receive Date: 20140505
  Receipt Date: 20140505
  Transmission Date: 20141212
  Serious: Yes (Hospitalization, Other)
  Sender: FDA-Public Use
  Company Number: TR-AMGEN-TURSP2014032328

PATIENT
  Age: 5 Year
  Sex: Female

DRUGS (6)
  1. ENBREL [Suspect]
     Indication: PRODUCT USED FOR UNKNOWN INDICATION
     Dosage: 15 MG, WEEKLY
     Route: 065
  2. ISONIAZID [Concomitant]
     Dosage: UNK
  3. METHOTREXATE [Concomitant]
     Dosage: 15 MG, WEEKLY
  4. FOLBIOL [Concomitant]
     Dosage: UNK
  5. TALCID [Concomitant]
     Dosage: UNK
  6. COLCHICINE [Concomitant]
     Dosage: UNK

REACTIONS (6)
  - Benign intracranial hypertension [Unknown]
  - Papilloedema [Unknown]
  - Nausea [Recovering/Resolving]
  - Headache [Recovering/Resolving]
  - Vomiting [Recovering/Resolving]
  - Somnolence [Unknown]
